FAERS Safety Report 6279398-8 (Version None)
Quarter: 2009Q3

REPORT INFORMATION
  Report Type: 
  Country: None (occurrence: None)
  Receive Date: 20090721
  Receipt Date: 20090709
  Transmission Date: 20100115
  Serious: Yes (Hospitalization)
  Sender: FDA-Public Use
  Company Number: 2009-01510

PATIENT
  Age: 61 Year
  Sex: Female
  Weight: 67 kg

DRUGS (2)
  1. VELCADE [Suspect]
     Indication: DRUG USE FOR UNKNOWN INDICATION
     Dosage: 1.8 MG, UNK, INTRAVENOUS
     Route: 042
     Dates: start: 20081017, end: 20090413
  2. RIFAMPICIN [Suspect]
     Dosage: UNK, UNK, UNK

REACTIONS (1)
  - CATHETER SITE CELLULITIS [None]
